FAERS Safety Report 4279635-5 (Version None)
Quarter: 2004Q1

REPORT INFORMATION
  Report Type: 
  Country: None (occurrence: None)
  Receive Date: 20040123
  Receipt Date: 20040115
  Transmission Date: 20041129
  Serious: Yes (Hospitalization)
  Sender: FDA-Public Use
  Company Number: PERI00204000124

PATIENT
  Age: 78 Year
  Sex: Male

DRUGS (2)
  1. COVERSYL (PERINDOPRIL) [Suspect]
     Indication: ILL-DEFINED DISORDER
     Dosage: 4 MG QD PO
     Route: 048
     Dates: start: 20031129, end: 20031202
  2. AMLODIPINE BESYLATE [Concomitant]

REACTIONS (2)
  - ANGIONEUROTIC OEDEMA [None]
  - PURPURA [None]
